FAERS Safety Report 5906688-8 (Version None)
Quarter: 2008Q4

REPORT INFORMATION
  Report Type: 
  Country: None (occurrence: None)
  Receive Date: 20081002
  Receipt Date: 20080922
  Transmission Date: 20090506
  Serious: Yes (Hospitalization)
  Sender: FDA-Public Use
  Company Number: ES-GENENTECH-268839

PATIENT
  Sex: Female

DRUGS (4)
  1. TRASTUZUMAB [Suspect]
     Indication: BREAST CANCER
     Dosage: 324 MG, Q3W
     Route: 042
     Dates: start: 20080604
  2. FLUOROURACIL [Suspect]
     Indication: BREAST CANCER
     Dosage: 923.69 MG, Q3W
     Route: 042
     Dates: start: 20080916
  3. EPIRUBICIN [Suspect]
     Indication: BREAST CANCER
     Dosage: 138.55 MG, Q3W
     Route: 042
     Dates: start: 20080916
  4. CYCLOPHOSPHAMIDE [Suspect]
     Indication: BREAST CANCER
     Dosage: 923.69 MG, Q3W
     Route: 042
     Dates: start: 20080916

REACTIONS (1)
  - ANGINA PECTORIS [None]
